FAERS Safety Report 4960469-0 (Version None)
Quarter: 2006Q2

REPORT INFORMATION
  Report Type: 
  Country: None (occurrence: None)
  Receive Date: 20060403
  Receipt Date: 20060330
  Transmission Date: 20061013
  Serious: Yes (Hospitalization)
  Sender: FDA-Public Use
  Company Number: 2006-0049

PATIENT
  Age: 73 Year
  Sex: Female
  Weight: 64 kg

DRUGS (6)
  1. ZOPHREN [Suspect]
     Route: 042
     Dates: start: 20060215, end: 20060215
  2. RANIPLEX [Suspect]
     Route: 042
     Dates: start: 20060215, end: 20060215
  3. PRIMPERAN TAB [Suspect]
     Route: 042
     Dates: start: 20060215, end: 20060215
  4. SOLU-MEDROL [Suspect]
     Route: 042
     Dates: start: 20060215, end: 20060215
  5. OSMOTAN [Suspect]
     Route: 042
     Dates: start: 20060215, end: 20060215
  6. TAXOL [Suspect]
     Route: 042
     Dates: start: 20060215, end: 20060215

REACTIONS (4)
  - BACK PAIN [None]
  - BRONCHOSPASM [None]
  - DYSPNOEA [None]
  - ERYTHEMA [None]
